FAERS Safety Report 14344245 (Version 2)
Quarter: 2018Q2

REPORT INFORMATION
  Report Type: Spontaneous
  Country: US (occurrence: US)
  Receive Date: 20180102
  Receipt Date: 20180508
  Transmission Date: 20180711
  Serious: Yes (Hospitalization, Other)
  Sender: FDA-Public Use
  Company Number: US-ALLERGAN-1773867US

PATIENT
  Age: 77 Year
  Sex: Female

DRUGS (2)
  1. REFRESH PLUS [Suspect]
     Active Substance: CARBOXYMETHYLCELLULOSE SODIUM
     Indication: DRY EYE
     Dosage: 2 GTT, TID
     Route: 047
     Dates: start: 1992
  2. COUMADIN [Suspect]
     Active Substance: WARFARIN SODIUM
     Indication: HEART RATE IRREGULAR
     Dosage: UNK
     Route: 065

REACTIONS (5)
  - Drug dose omission [Unknown]
  - Haemoglobin decreased [Not Recovered/Not Resolved]
  - Cerebrovascular accident [Recovered/Resolved]
  - Product packaging quantity issue [Unknown]
  - Heart rate irregular [Not Recovered/Not Resolved]

NARRATIVE: CASE EVENT DATE: 20161231
